FAERS Safety Report 6881967-9 (Version None)
Quarter: 2010Q3

REPORT INFORMATION
  Report Type: 
  Country: None (occurrence: None)
  Receive Date: 20100727
  Receipt Date: 20090610
  Transmission Date: 20110219
  Serious: No
  Sender: FDA-Public Use
  Company Number: US-MYLANLABS-2009S1010351

PATIENT
  Age: 44 Year
  Sex: Male

DRUGS (4)
  1. BUSPIRONE HCL [Suspect]
     Route: 048
     Dates: start: 20090219, end: 20090223
  2. ATENOLOL AND CHLORTHALIDONE [Concomitant]
  3. SIMVASTATIN [Concomitant]
  4. ALLEGRA D 24 HOUR [Concomitant]

REACTIONS (5)
  - ANXIETY [None]
  - DRUG INEFFECTIVE [None]
  - FEELING JITTERY [None]
  - NERVOUSNESS [None]
  - TREMOR [None]
